FAERS Safety Report 21539574 (Version 3)
Quarter: 2023Q1

REPORT INFORMATION
  Report Type: Report from Study
  Country: US (occurrence: US)
  Receive Date: 20221102
  Receipt Date: 20230128
  Transmission Date: 20230418
  Serious: No
  Sender: FDA-Public Use
  Company Number: US-ABBVIE-4183392

PATIENT
  Age: 79 Year
  Sex: Male
  Weight: 92 kg

DRUGS (2)
  1. IMBRUVICA [Suspect]
     Active Substance: IBRUTINIB
     Indication: Monoclonal gammopathy
     Dosage: FORM STRENGTH 420 MG
     Route: 048
     Dates: start: 202209
  2. IMBRUVICA [Suspect]
     Active Substance: IBRUTINIB
     Indication: Monoclonal gammopathy
     Dosage: FORM STRENGTH 420 MG
     Route: 048

REACTIONS (6)
  - Pain [Unknown]
  - Muscle spasms [Recovering/Resolving]
  - Abdominal pain upper [Recovering/Resolving]
  - Urinary retention [Unknown]
  - Constipation [Recovering/Resolving]
  - Anorectal discomfort [Recovering/Resolving]

NARRATIVE: CASE EVENT DATE: 20221001
